FAERS Safety Report 6135965-3 (Version None)
Quarter: 2009Q1

REPORT INFORMATION
  Report Type: 
  Country: None (occurrence: None)
  Receive Date: 20090329
  Receipt Date: 20080415
  Transmission Date: 20090719
  Serious: No
  Sender: FDA-Public Use
  Company Number: US-BAUSCH-2008BL001690

PATIENT
  Age: 76 Year
  Sex: Male

DRUGS (2)
  1. LOTEMAX [Suspect]
     Route: 047
     Dates: start: 20080408, end: 20080415
  2. HYDROCHLOROTHIAZIDE [Concomitant]
     Indication: HYPERTENSION

REACTIONS (1)
  - DRUG INEFFECTIVE [None]
